FAERS Safety Report 9965253 (Version 1)
Quarter: 2014Q1

REPORT INFORMATION
  Report Type: Report from Study
  Country: None (occurrence: US)
  Receive Date: 20140305
  Receipt Date: 20140305
  Transmission Date: 20141002
  Serious: No
  Sender: FDA-Public Use
  Company Number: US-ABBVIE-13P-163-1127914-00

PATIENT
  Age: 22 Year
  Sex: Female
  Weight: 61.74 kg

DRUGS (4)
  1. HUMIRA [Suspect]
     Indication: CROHN^S DISEASE
     Route: 058
     Dates: start: 20130725
  2. 6MP [Concomitant]
     Indication: CROHN^S DISEASE
  3. HYOSCYAMINE [Concomitant]
     Indication: CROHN^S DISEASE
  4. IMODIUM [Concomitant]
     Indication: CROHN^S DISEASE

REACTIONS (5)
  - Asthenia [Not Recovered/Not Resolved]
  - Vision blurred [Not Recovered/Not Resolved]
  - Headache [Not Recovered/Not Resolved]
  - Nausea [Not Recovered/Not Resolved]
  - Dry throat [Not Recovered/Not Resolved]
